FAERS Safety Report 15651026 (Version 1)
Quarter: 2018Q4

REPORT INFORMATION
  Report Type: Spontaneous
  Country: HR (occurrence: HR)
  Receive Date: 20181123
  Receipt Date: 20181123
  Transmission Date: 20190205
  Serious: Yes (Other)
  Sender: FDA-Public Use
  Company Number: HR-PROVELL PHARMACEUTICALS-2059224

PATIENT
  Age: 11 Year
  Sex: Female
  Weight: 67 kg

DRUGS (1)
  1. EUTHYROX [Suspect]
     Active Substance: LEVOTHYROXINE SODIUM
     Indication: HYPOTHYROIDISM
     Route: 048
     Dates: start: 2000

REACTIONS (25)
  - Eye swelling [Unknown]
  - Iron deficiency [Unknown]
  - Muscular weakness [Unknown]
  - Anxiety [Not Recovered/Not Resolved]
  - Disturbance in attention [Not Recovered/Not Resolved]
  - Photosensitivity reaction [Unknown]
  - Fatigue [Not Recovered/Not Resolved]
  - Dysphagia [Unknown]
  - Alopecia [Not Recovered/Not Resolved]
  - Irritability [Unknown]
  - Temperature intolerance [Not Recovered/Not Resolved]
  - Arthralgia [Not Recovered/Not Resolved]
  - Mood swings [Not Recovered/Not Resolved]
  - Increased appetite [Unknown]
  - Nervousness [Unknown]
  - Vulvovaginal dryness [Unknown]
  - Depression [Not Recovered/Not Resolved]
  - Muscle spasms [Unknown]
  - Heart rate increased [Unknown]
  - Palpitations [Unknown]
  - Asthenia [Unknown]
  - Dry skin [Unknown]
  - Sleep disorder [Not Recovered/Not Resolved]
  - Erythema [Unknown]
  - Neck pain [Unknown]

NARRATIVE: CASE EVENT DATE: 2000
